FAERS Safety Report 23969322 (Version 1)
Quarter: 2024Q2

REPORT INFORMATION
  Report Type: Spontaneous
  Country: US (occurrence: US)
  Receive Date: 20240612
  Receipt Date: 20240612
  Transmission Date: 20240716
  Serious: No
  Sender: FDA-Public Use
  Company Number: US-ABBVIE-5791447

PATIENT
  Age: 47 Year

DRUGS (2)
  1. LEXAPRO [Suspect]
     Active Substance: ESCITALOPRAM OXALATE
     Indication: Product used for unknown indication
     Dosage: TAKING 5 - 10 MG
     Route: 048
     Dates: start: 2023
  2. LEXAPRO [Suspect]
     Active Substance: ESCITALOPRAM OXALATE
     Indication: Product used for unknown indication
     Dosage: TAKING 5 - 10 MG
     Route: 048
     Dates: start: 2023

REACTIONS (2)
  - Premature ageing [Unknown]
  - Depressive symptom [Unknown]
